FAERS Safety Report 19576637 (Version 2)
Quarter: 2021Q4

REPORT INFORMATION
  Report Type: Spontaneous
  Country: US (occurrence: US)
  Receive Date: 20210719
  Receipt Date: 20211005
  Transmission Date: 20220303
  Serious: Yes (Other)
  Sender: FDA-Public Use
  Company Number: US-GLAXOSMITHKLINE-US2021GSK154809

PATIENT
  Sex: Female

DRUGS (18)
  1. ZANTAC [Suspect]
     Active Substance: RANITIDINE HYDROCHLORIDE
     Indication: Peptic ulcer
     Dosage: UNK
     Route: 065
     Dates: start: 198601, end: 202101
  2. ZANTAC [Suspect]
     Active Substance: RANITIDINE HYDROCHLORIDE
     Indication: Dyspepsia
     Dosage: UNK, OCCASIONAL MONTHLY
     Route: 065
     Dates: start: 198001, end: 202012
  3. ZANTAC [Suspect]
     Active Substance: RANITIDINE HYDROCHLORIDE
     Indication: Gastrooesophageal reflux disease
  4. ZANTAC [Suspect]
     Active Substance: RANITIDINE HYDROCHLORIDE
     Indication: Dyspepsia
  5. ZANTAC [Suspect]
     Active Substance: RANITIDINE HYDROCHLORIDE
     Indication: Dyspepsia
  6. ZANTAC [Suspect]
     Active Substance: RANITIDINE HYDROCHLORIDE
     Indication: Gastric ulcer
  7. ZANTAC [Suspect]
     Active Substance: RANITIDINE HYDROCHLORIDE
     Indication: Abdominal discomfort
  8. ZANTAC [Suspect]
     Active Substance: RANITIDINE HYDROCHLORIDE
     Indication: Peptic ulcer
     Dosage: UNK
     Route: 065
     Dates: start: 198601, end: 202101
  9. ZANTAC [Suspect]
     Active Substance: RANITIDINE HYDROCHLORIDE
     Indication: Dyspepsia
     Dosage: UNK , OCCASIONAL MONTHLY
     Route: 065
     Dates: start: 198001, end: 202012
  10. ZANTAC [Suspect]
     Active Substance: RANITIDINE HYDROCHLORIDE
     Indication: Gastrooesophageal reflux disease
  11. ZANTAC [Suspect]
     Active Substance: RANITIDINE HYDROCHLORIDE
     Indication: Dyspepsia
  12. ZANTAC [Suspect]
     Active Substance: RANITIDINE HYDROCHLORIDE
     Indication: Dyspepsia
  13. ZANTAC [Suspect]
     Active Substance: RANITIDINE HYDROCHLORIDE
     Indication: Abdominal discomfort
  14. ZANTAC [Suspect]
     Active Substance: RANITIDINE HYDROCHLORIDE
     Indication: Gastric ulcer
  15. RANITIDINE [Suspect]
     Active Substance: RANITIDINE
     Indication: Peptic ulcer
     Dosage: UNK
     Route: 065
     Dates: start: 198601, end: 202101
  16. RANITIDINE [Suspect]
     Active Substance: RANITIDINE
     Indication: Peptic ulcer
     Dosage: UNK
     Route: 065
     Dates: start: 198601, end: 202101
  17. RANITIDINE [Suspect]
     Active Substance: RANITIDINE
     Indication: Peptic ulcer
     Dosage: UNK
     Route: 065
     Dates: start: 198601, end: 202101
  18. RANITIDINE [Suspect]
     Active Substance: RANITIDINE
     Indication: Peptic ulcer
     Dosage: UNK
     Route: 065
     Dates: start: 198601, end: 202101

REACTIONS (1)
  - Lung neoplasm malignant [Unknown]
